FAERS Safety Report 21526338 (Version 2)
Quarter: 2024Q4

REPORT INFORMATION
  Report Type: Spontaneous
  Country: US (occurrence: US)
  Receive Date: 20221031
  Receipt Date: 20241105
  Transmission Date: 20250114
  Serious: No
  Sender: UCB
  Company Number: US-UCBSA-2022000588

PATIENT
  Age: 26 Year
  Sex: Female

DRUGS (4)
  1. VIMPAT [Suspect]
     Active Substance: LACOSAMIDE
     Indication: Cerebral palsy
     Dosage: 100MG UNK
  2. VIMPAT [Suspect]
     Active Substance: LACOSAMIDE
     Indication: Epilepsy
  3. VIMPAT [Suspect]
     Active Substance: LACOSAMIDE
     Indication: Hydrocephalus
  4. VIMPAT [Suspect]
     Active Substance: LACOSAMIDE
     Indication: Off label use

REACTIONS (1)
  - No adverse event [Unknown]
